FAERS Safety Report 11104589 (Version 2)
Quarter: 2015Q2

REPORT INFORMATION
  Report Type: Report from Study
  Country: US (occurrence: US)
  Receive Date: 20150511
  Receipt Date: 20150603
  Transmission Date: 20150821
  Serious: Yes (Death, Hospitalization)
  Sender: FDA-Public Use
  Company Number: US-JNJFOC-20150506387

PATIENT
  Age: 47 Year
  Sex: Male
  Weight: 130.9 kg

DRUGS (1)
  1. IBRUTINIB [Suspect]
     Active Substance: IBRUTINIB
     Indication: ENTEROPATHY-ASSOCIATED T-CELL LYMPHOMA
     Route: 048
     Dates: start: 20150323, end: 20150501

REACTIONS (5)
  - Abdominal distension [Unknown]
  - Sinus tachycardia [Unknown]
  - Fatigue [Unknown]
  - Small intestinal perforation [Fatal]
  - Hypotension [Unknown]

NARRATIVE: CASE EVENT DATE: 20150501
